FAERS Safety Report 8229012-7 (Version None)
Quarter: 2012Q1

REPORT INFORMATION
  Report Type: 
  Country: None (occurrence: None)
  Receive Date: 20120322
  Receipt Date: 20120316
  Transmission Date: 20120608
  Serious: Yes (Hospitalization)
  Sender: FDA-Public Use
  Company Number: IT-PFIZER INC-2012058064

PATIENT
  Age: 42 Year
  Sex: Female

DRUGS (2)
  1. XANAX [Suspect]
     Dosage: 40 ML, SINGLE
     Route: 048
     Dates: start: 20120215, end: 20120215
  2. LORAZEPAM [Suspect]
     Dosage: 150 MG, SINGLE
     Route: 048
     Dates: start: 20120215, end: 20120215

REACTIONS (3)
  - DEPRESSED LEVEL OF CONSCIOUSNESS [None]
  - SOPOR [None]
  - SUICIDE ATTEMPT [None]
